FAERS Safety Report 8215412-8 (Version None)
Quarter: 2012Q1

REPORT INFORMATION
  Report Type: 
  Country: None (occurrence: None)
  Receive Date: 20120316
  Receipt Date: 20120308
  Transmission Date: 20120608
  Serious: Yes (Hospitalization)
  Sender: FDA-Public Use
  Company Number: DE-ABBOTT-12P-062-0913234-00

PATIENT
  Sex: Female

DRUGS (7)
  1. HUMIRA [Suspect]
     Indication: PSORIATIC ARTHROPATHY
     Route: 058
     Dates: start: 20091001, end: 20120101
  2. HUMIRA [Suspect]
     Route: 058
     Dates: start: 20120229
  3. CORTISONE ACETATE [Concomitant]
     Indication: PSORIATIC ARTHROPATHY
  4. LEVOTHYROXINE SODIUM [Concomitant]
     Indication: AUTOIMMUNE THYROIDITIS
     Dosage: 75UG OD
     Route: 048
  5. ANALGETIC DRUG [Concomitant]
     Indication: PSORIATIC ARTHROPATHY
  6. ERGOCALCIFEROL [Concomitant]
     Indication: PRODUCT USED FOR UNKNOWN INDICATION
  7. DIFFERENT DRUG FOR ARTHRITIS PSORIATICA MEDICATION [Concomitant]
     Indication: PSORIATIC ARTHROPATHY
     Dates: start: 20120101, end: 20120228

REACTIONS (2)
  - EPISTAXIS [None]
  - HOSPITALISATION [None]
